FAERS Safety Report 8764938 (Version 1)
Quarter: 2012Q4

REPORT INFORMATION
  Report Type: 
  Country: RU (occurrence: RU)
  Receive Date: 20120902
  Receipt Date: 20120902
  Transmission Date: 20130627
  Serious: Yes (Hospitalization)
  Sender: FDA-Public Use
  Company Number: RU-MYLANLABS-2012S1017484

PATIENT
  Age: 63 Year
  Sex: Female

DRUGS (12)
  1. CIFRAM [Suspect]
     Indication: PNEUMONIA
     Dosage: given at maximum dosage
     Route: 065
  2. CEFOTAXIME [Suspect]
     Indication: PNEUMONIA
     Dosage: given at maximum dosage
     Route: 065
  3. METRONIDAZOLE [Suspect]
     Indication: PNEUMONIA
     Dosage: given at maximum dosage
     Route: 065
  4. CIPROFLOXACIN [Suspect]
     Indication: PNEUMONIA
     Dosage: given at maximum dosage
     Route: 065
  5. AZITHROMYCIN [Suspect]
     Indication: PNEUMONIA
     Dosage: given at maximum dosage
     Route: 065
  6. AMOXICILLIN + CLAVULANATE POTASSIUM [Suspect]
     Indication: PNEUMONIA
     Route: 040
  7. ENALAPRIL [Concomitant]
     Indication: HYPERTENSION
     Dosage: regular use of 10 mg/day
     Route: 065
  8. ENALAPRIL [Concomitant]
     Route: 048
  9. MILDRONATE [Concomitant]
     Indication: PNEUMONIA
     Dosage: 5mL of 10% solution
     Route: 065
  10. ANALGIN [Concomitant]
     Indication: PNEUMONIA
     Dosage: 50% solution 2mL in 0.9% sodium chloride solution
     Route: 041
  11. DICLOFENAC [Concomitant]
     Indication: PNEUMONIA
     Route: 048
  12. DIFLUCAN [Concomitant]
     Indication: PNEUMONIA
     Route: 048

REACTIONS (3)
  - Alveolitis allergic [Recovering/Resolving]
  - Pulmonary fibrosis [Recovering/Resolving]
  - Acute respiratory failure [Recovering/Resolving]
